FAERS Safety Report 7322817-6 (Version None)
Quarter: 2011Q1

REPORT INFORMATION
  Report Type: 
  Country: None (occurrence: None)
  Receive Date: 20110217
  Receipt Date: 20110204
  Transmission Date: 20110831
  Serious: Yes (Other)
  Sender: FDA-Public Use
  Company Number: 027227

PATIENT
  Age: 71 Year
  Sex: Male

DRUGS (2)
  1. LEVETIRACETAM [Suspect]
     Indication: EPILEPSY
  2. VALPROATE SODIUM [Suspect]
     Indication: EPILEPSY

REACTIONS (1)
  - ENCEPHALOPATHY [None]
